FAERS Safety Report 21627318 (Version 1)
Quarter: 2022Q4

REPORT INFORMATION
  Report Type: Spontaneous
  Country: AU (occurrence: AU)
  Receive Date: 20221122
  Receipt Date: 20221122
  Transmission Date: 20230113
  Serious: Yes (Other)
  Sender: FDA-Public Use
  Company Number: AU-AMGEN-AUSSP2022199385

PATIENT
  Age: 43 Year
  Sex: Male

DRUGS (1)
  1. PROLIA [Suspect]
     Active Substance: DENOSUMAB
     Indication: High turnover osteopathy
     Dosage: 60 MILLIGRAM
     Route: 065

REACTIONS (2)
  - Osteomalacia [Unknown]
  - Off label use [Unknown]
